FAERS Safety Report 7786284-0 (Version None)
Quarter: 2011Q3

REPORT INFORMATION
  Report Type: 
  Country: None (occurrence: None)
  Receive Date: 20110929
  Receipt Date: 20110920
  Transmission Date: 20111222
  Serious: Yes (Hospitalization)
  Sender: FDA-Public Use
  Company Number: PHFR2011GB04817

PATIENT
  Sex: Female

DRUGS (2)
  1. CLOZAPINE [Suspect]
     Indication: SCHIZOPHRENIA
     Route: 048
     Dates: start: 20041201, end: 20110831
  2. AMISULPRIDE [Suspect]
     Route: 065

REACTIONS (8)
  - DIARRHOEA [None]
  - TACHYCARDIA [None]
  - COLITIS [None]
  - GASTRIC DISORDER [None]
  - SEPSIS [None]
  - MALAISE [None]
  - VOMITING [None]
  - POST PROCEDURAL INFECTION [None]
